FAERS Safety Report 7148971-7 (Version None)
Quarter: 2010Q4

REPORT INFORMATION
  Report Type: 
  Country: None (occurrence: None)
  Receive Date: 20101124
  Receipt Date: 20101118
  Transmission Date: 20110411
  Serious: Yes (Other)
  Sender: FDA-Public Use
  Company Number: 20109628

PATIENT
  Age: 55 Year
  Sex: Male

DRUGS (3)
  1. LIORESAL [Suspect]
     Indication: MUSCLE SPASTICITY
     Dosage: SEE B5, MCG, DAILY; INTRATHECAL
     Route: 039
  2. BUPIVACINE [Concomitant]
  3. BACLOFEN [Concomitant]

REACTIONS (2)
  - DEVICE ISSUE [None]
  - DRUG INEFFECTIVE [None]
